FAERS Safety Report 7917083-4 (Version None)
Quarter: 2011Q4

REPORT INFORMATION
  Report Type: 
  Country: None (occurrence: None)
  Receive Date: 20111116
  Receipt Date: 20111110
  Transmission Date: 20120403
  Serious: Yes (Life-Threatening, Hospitalization, Disabling)
  Sender: FDA-Public Use
  Company Number: CN-ROXANE LABORATORIES, INC.-2011-RO-01625RO

PATIENT
  Age: 42 Month
  Sex: Female
  Weight: 15 kg

DRUGS (1)
  1. DIPHENOXYLATE HCL AND ATROPINE SULFATE [Suspect]
     Route: 048

REACTIONS (4)
  - RESPIRATORY ARREST [None]
  - BLINDNESS [None]
  - TOXICITY TO VARIOUS AGENTS [None]
  - TOXIC ENCEPHALOPATHY [None]
